FAERS Safety Report 8126392-8 (Version None)
Quarter: 2012Q1

REPORT INFORMATION
  Report Type: 
  Country: None (occurrence: None)
  Receive Date: 20120209
  Receipt Date: 20120206
  Transmission Date: 20120608
  Serious: Yes (Hospitalization)
  Sender: FDA-Public Use
  Company Number: US-MERCK-1202USA01114

PATIENT
  Age: 56 Year
  Sex: Male

DRUGS (2)
  1. PEGASYS [Concomitant]
     Indication: HEPATITIS
     Route: 065
     Dates: start: 20120106
  2. PRINIVIL [Suspect]
     Indication: BLOOD PRESSURE
     Route: 048
     Dates: start: 20120106

REACTIONS (4)
  - DIZZINESS [None]
  - DYSPHAGIA [None]
  - NECK PAIN [None]
  - LOCAL SWELLING [None]
